FAERS Safety Report 20743606 (Version 1)
Quarter: 2022Q2

REPORT INFORMATION
  Report Type: Report from Study
  Country: CN (occurrence: CN)
  Receive Date: 20220425
  Receipt Date: 20220425
  Transmission Date: 20220721
  Serious: Yes (Other)
  Sender: FDA-Public Use
  Company Number: CN-BRISTOL-MYERS SQUIBB COMPANY-2022-011164

PATIENT
  Age: 60 Year
  Sex: Male

DRUGS (1)
  1. OPDIVO [Suspect]
     Active Substance: NIVOLUMAB
     Indication: Squamous cell carcinoma of head and neck
     Route: 041
     Dates: start: 20210919, end: 20220311

REACTIONS (3)
  - Oropharyngeal cancer [Unknown]
  - Off label use [Unknown]
  - Incision site abscess [Unknown]

NARRATIVE: CASE EVENT DATE: 20220311
